FAERS Safety Report 5500624-4 (Version None)
Quarter: 2007Q4

REPORT INFORMATION
  Report Type: 
  Country: None (occurrence: None)
  Receive Date: 20071018
  Receipt Date: 20070511
  Transmission Date: 20080405
  Serious: Yes (Other)
  Sender: FDA-Public Use
  Company Number: 2007039045

PATIENT
  Age: 54 Year
  Sex: Male
  Weight: 136.3 kg

DRUGS (2)
  1. NEURONTIN [Suspect]
     Indication: BACK PAIN
     Dosage: 300 MG (100 MG, 3 IN 1D)
     Dates: start: 20070405, end: 20070420
  2. IBUPROFEN [Concomitant]

REACTIONS (5)
  - ARTHRALGIA [None]
  - DRUG INEFFECTIVE [None]
  - ECCHYMOSIS [None]
  - GAIT DISTURBANCE [None]
  - OEDEMA PERIPHERAL [None]
